FAERS Safety Report 5368900-6 (Version None)
Quarter: 2007Q2

REPORT INFORMATION
  Report Type: 
  Country: None (occurrence: None)
  Receive Date: 20070625
  Receipt Date: 20061101
  Transmission Date: 20071010
  Serious: Yes (Hospitalization, Other)
  Sender: FDA-Public Use
  Company Number: US-ASTRAZENECA-2006UW20132

PATIENT
  Age: 60 Year
  Sex: Male

DRUGS (16)
  1. CRESTOR [Suspect]
     Route: 048
  2. TRICOR [Suspect]
  3. KALETRA [Concomitant]
  4. VIREAD [Concomitant]
  5. ZIAGEN [Concomitant]
  6. REYATAZ [Concomitant]
  7. GEMFIBROZIL [Concomitant]
  8. INSULIN [Concomitant]
  9. GABAPENTIN [Concomitant]
  10. FLOMAX [Concomitant]
  11. AMBIEN [Concomitant]
  12. ALPRAZOLAM [Concomitant]
  13. DIAZEPAM [Concomitant]
  14. ASPIRIN [Concomitant]
  15. CENTRUM [Concomitant]
  16. DEPAKOTE [Concomitant]

REACTIONS (2)
  - BLOOD CREATINE PHOSPHOKINASE INCREASED [None]
  - RHABDOMYOLYSIS [None]
